FAERS Safety Report 21109420 (Version 3)
Quarter: 2022Q4

REPORT INFORMATION
  Report Type: Report from Study
  Country: ES (occurrence: ES)
  Receive Date: 20220721
  Receipt Date: 20221123
  Transmission Date: 20230113
  Serious: Yes (Death, Hospitalization, Other)
  Sender: FDA-Public Use
  Company Number: ES-CELLTRION INC.-2022ES010840

PATIENT

DRUGS (13)
  1. RITUXIMAB [Suspect]
     Active Substance: RITUXIMAB
     Indication: Chronic lymphocytic leukaemia
     Dosage: 375 MG/M2 EVERY 28 DAYS
     Route: 042
     Dates: start: 20220322, end: 20220322
  2. RITUXIMAB [Suspect]
     Active Substance: RITUXIMAB
     Dosage: 500 MG/M2 EVERY 28 DAYS
     Route: 042
     Dates: start: 20220419, end: 20220517
  3. VENETOCLAX [Suspect]
     Active Substance: VENETOCLAX
     Indication: Chronic lymphocytic leukaemia
     Dosage: 100 MG, EVERY 1 DAY
     Route: 048
     Dates: start: 20220224, end: 20220302
  4. VENETOCLAX [Suspect]
     Active Substance: VENETOCLAX
     Dosage: 200 MG, EVERY 1 DAY
     Route: 048
     Dates: start: 20220303, end: 20220309
  5. VENETOCLAX [Suspect]
     Active Substance: VENETOCLAX
     Dosage: 50 MG, EVERY 1 DAY
     Route: 048
     Dates: start: 20220217, end: 20220223
  6. VENETOCLAX [Suspect]
     Active Substance: VENETOCLAX
     Dosage: 20 MG, EVERY 1 DAY/RECEIVED THE LAST DOSE OF VENETOCLAX PRIOR TO EVENT ONSET: 08/JUN/2022
     Route: 048
     Dates: start: 20220210, end: 20220216
  7. VENETOCLAX [Suspect]
     Active Substance: VENETOCLAX
     Dosage: 400 MG, EVERY 1 DAY
     Route: 048
     Dates: start: 20220310, end: 20220608
  8. ENALAPRIL [Concomitant]
     Active Substance: ENALAPRIL
     Dosage: UNK
     Dates: start: 20200318
  9. RISEDRONATE SODIUM [Concomitant]
     Active Substance: RISEDRONATE SODIUM
     Dosage: UNK
     Dates: start: 20200428
  10. PAROXETINE HYDROCHLORIDE [Concomitant]
     Active Substance: PAROXETINE HYDROCHLORIDE
     Dosage: UNK
     Dates: start: 20180208
  11. FEBUXOSTAT [Concomitant]
     Active Substance: FEBUXOSTAT
     Dates: start: 20220220
  12. OMEPRAZOLE [Concomitant]
     Active Substance: OMEPRAZOLE
     Dates: start: 20220322
  13. CALCIFEDIOL [Concomitant]
     Active Substance: CALCIFEDIOL
     Dosage: UNK
     Dates: start: 20200427

REACTIONS (2)
  - Septic shock [Fatal]
  - Sepsis [Fatal]

NARRATIVE: CASE EVENT DATE: 20220608
